FAERS Safety Report 10870600 (Version 1)
Quarter: 2015Q1

REPORT INFORMATION
  Report Type: Spontaneous
  Country: FR (occurrence: None)
  Receive Date: 20150223
  Receipt Date: 20150223
  Transmission Date: 20150721
  Serious: Yes (Hospitalization)
  Sender: FDA-Public Use
  Company Number: 2748298

PATIENT
  Age: 75 Year
  Sex: Female

DRUGS (2)
  1. GEMCITABINE HYDROCHLORIDE. [Suspect]
     Active Substance: GEMCITABINE HYDROCHLORIDE
     Indication: ADENOCARCINOMA PANCREAS
     Dosage: NOT OTHERWISE SPECIFIED
     Route: 042
     Dates: start: 20140516, end: 20150115
  2. PACLITAXEL. [Suspect]
     Active Substance: PACLITAXEL
     Indication: ADENOCARCINOMA PANCREAS
     Dosage: NOT OTHERWISE SPECIFIED
     Route: 042
     Dates: start: 20141007, end: 20150115

REACTIONS (5)
  - Lung disorder [None]
  - Alveolitis [None]
  - Thrombocytopenia [None]
  - Discomfort [None]
  - Activities of daily living impaired [None]

NARRATIVE: CASE EVENT DATE: 20141015
